FAERS Safety Report 9658757 (Version 9)
Quarter: 2014Q1

REPORT INFORMATION
  Report Type: Report from Study
  Country: US (occurrence: US)
  Receive Date: 20131030
  Receipt Date: 20140310
  Transmission Date: 20141002
  Serious: Yes (Hospitalization, Congenital Anomaly, Other)
  Sender: FDA-Public Use
  Company Number: US-GILEAD-2013-0083470

PATIENT
  Age: 0 Year
  Sex: Female
  Weight: 3.1 kg

DRUGS (10)
  1. EMTRICITABINE/RILPIVIRINE/TENOFOVIR DF [Suspect]
     Indication: HIV INFECTION
     Dosage: 1 DF, QD
     Route: 064
     Dates: start: 20130411, end: 20130829
  2. DARUNAVIR [Suspect]
     Indication: HIV INFECTION
     Dosage: UNK
     Route: 064
     Dates: start: 20130411, end: 20130829
  3. DARUNAVIR [Suspect]
     Dosage: UNK
     Route: 064
  4. RETROVIR [Concomitant]
     Indication: PRODUCT USED FOR UNKNOWN INDICATION
     Dosage: 4 MG/KG, UNK
     Route: 065
  5. RETROVIR [Concomitant]
     Dosage: 300 MG, BID
     Route: 064
     Dates: end: 20130829
  6. BACTRIM [Concomitant]
     Indication: PRODUCT USED FOR UNKNOWN INDICATION
     Dosage: 1 DF, QD
     Route: 064
     Dates: end: 20130829
  7. METROGEL [Concomitant]
     Indication: PRODUCT USED FOR UNKNOWN INDICATION
     Dosage: 1 DF, QD
     Route: 064
     Dates: end: 20130829
  8. DIFLUCAN [Concomitant]
     Indication: PRODUCT USED FOR UNKNOWN INDICATION
     Dosage: 150 MG, QOD
     Route: 064
     Dates: end: 20130829
  9. PHENERGAN                          /00033001/ [Concomitant]
     Indication: PRODUCT USED FOR UNKNOWN INDICATION
     Dosage: 25 MG, QD
     Route: 064
     Dates: end: 20130829
  10. MULTIVITAMINS [Concomitant]
     Dosage: UNK
     Route: 064
     Dates: end: 20130829

REACTIONS (4)
  - Ventricular septal defect [Recovering/Resolving]
  - Sepsis [Recovered/Resolved]
  - Fever neonatal [Recovered/Resolved]
  - Foetal exposure during pregnancy [Recovered/Resolved]
